FAERS Safety Report 9919449 (Version 1)
Quarter: 2014Q1

REPORT INFORMATION
  Report Type: Spontaneous
  Country: IL (occurrence: IL)
  Receive Date: 20140224
  Receipt Date: 20140224
  Transmission Date: 20141002
  Serious: Yes (Death, Other)
  Sender: FDA-Public Use
  Company Number: IL-CELGENEUS-082-22393-14021332

PATIENT
  Age: 82 Year
  Sex: Female

DRUGS (1)
  1. ISTODAX [Suspect]
     Indication: MYCOSIS FUNGOIDES
     Route: 041

REACTIONS (2)
  - Pneumonia [Fatal]
  - Lung abscess [Fatal]
